FAERS Safety Report 12644590 (Version 3)
Quarter: 2016Q3

REPORT INFORMATION
  Report Type: Report from Study
  Country: US (occurrence: US)
  Receive Date: 20160811
  Receipt Date: 20160926
  Transmission Date: 20161109
  Serious: Yes (Hospitalization, Other)
  Sender: FDA-Public Use
  Company Number: US-TEVA-682047USA

PATIENT
  Age: 57 Year
  Sex: Female

DRUGS (7)
  1. BACLOFEN. [Suspect]
     Active Substance: BACLOFEN
     Dosage: 100 MILLIGRAM DAILY;
     Route: 048
  2. EFFEXOR XR [Concomitant]
     Active Substance: VENLAFAXINE HYDROCHLORIDE
     Dosage: 150 MILLIGRAM DAILY;
  3. AMPYRA [Suspect]
     Active Substance: DALFAMPRIDINE
     Indication: GAIT DISTURBANCE
     Dosage: 20 MILLIGRAM DAILY;
     Route: 048
  4. AMPYRA [Suspect]
     Active Substance: DALFAMPRIDINE
     Indication: MULTIPLE SCLEROSIS
  5. RESTASIS [Concomitant]
     Active Substance: CYCLOSPORINE
  6. GILENYA [Concomitant]
     Active Substance: FINGOLIMOD HYDROCHLORIDE
     Dosage: .5 MILLIGRAM DAILY;
  7. TIZANIDINE. [Suspect]
     Active Substance: TIZANIDINE
     Dosage: 4 MILLIGRAM DAILY; HS

REACTIONS (6)
  - Fatigue [Unknown]
  - Wound infection [Recovered/Resolved]
  - Loss of consciousness [Recovered/Resolved]
  - Injury associated with device [Recovered/Resolved]
  - Haematoma [Recovered/Resolved]
  - Withdrawal syndrome [Recovered/Resolved]

NARRATIVE: CASE EVENT DATE: 20160311
